FAERS Safety Report 21247710 (Version 1)
Quarter: 2022Q3

REPORT INFORMATION
  Report Type: Spontaneous
  Country: US (occurrence: None)
  Receive Date: 20220824
  Receipt Date: 20220824
  Transmission Date: 20221027
  Serious: No
  Sender: FDA-Public Use
  Company Number: US-Emmaus Medical, Inc.-EMM202204-000072

PATIENT
  Age: 47 Year
  Sex: Female
  Weight: 68.039 kg

DRUGS (3)
  1. ENDARI [Suspect]
     Active Substance: GLUTAMINE
     Indication: Sickle cell anaemia
     Dosage: 15 G
     Route: 048
  2. HYDROXYUREA [Concomitant]
     Active Substance: HYDROXYUREA
     Indication: Sickle cell anaemia
     Dosage: 1000 MG BY MOUTH
     Route: 048
  3. OXBRYTA [Concomitant]
     Active Substance: VOXELOTOR
     Indication: Sickle cell anaemia
     Dosage: 1600 MG BY MOUTH
     Route: 048

REACTIONS (1)
  - Product dose omission issue [Unknown]

NARRATIVE: CASE EVENT DATE: 20220417
